FAERS Safety Report 8790412 (Version 2)
Quarter: 2013Q2

REPORT INFORMATION
  Report Type: Spontaneous
  Country: US (occurrence: US)
  Receive Date: 20120917
  Receipt Date: 20130428
  Transmission Date: 20140414
  Serious: Yes (Other)
  Sender: FDA-Public Use
  Company Number: US-BAYER-2012-096036

PATIENT
  Age: 79 Year
  Sex: Female
  Weight: 86.17 kg

DRUGS (7)
  1. ALEVE CAPLET/TABLET,MIDOL EXTENDED RELIEF CAPLET [Suspect]
     Indication: PAIN
     Dosage: 2 DF, QD
     Route: 048
  2. ALEVE CAPLET/TABLET,MIDOL EXTENDED RELIEF CAPLET [Suspect]
     Indication: PAIN
     Dosage: 2 DF, QD
     Route: 048
  3. TOPROL [Concomitant]
  4. HYDROCHLOROTHIAZIDE [Concomitant]
     Dosage: 25 MG, QD
  5. RAMIPRIL [Concomitant]
     Dosage: 10 MG, QD
  6. METOPROLOL TARTRATE [Concomitant]
     Dosage: 50 MG, BID
  7. WARFARIN [Concomitant]
     Dosage: 15 MG WEEK

REACTIONS (1)
  - Abdominal pain upper [Recovered/Resolved]
